FAERS Safety Report 23172664 (Version 2)
Quarter: 2023Q4

REPORT INFORMATION
  Report Type: Spontaneous
  Country: US (occurrence: US)
  Receive Date: 20231110
  Receipt Date: 20231213
  Transmission Date: 20240109
  Serious: Yes (Other)
  Sender: FDA-Public Use
  Company Number: US-BEH-2023165238

PATIENT
  Age: 6 Year
  Sex: Male

DRUGS (14)
  1. IDELVION [Suspect]
     Active Substance: COAGULATION FACTOR IX RECOMBINANT HUMAN
     Indication: Factor IX deficiency
     Dosage: 1000 INTERNATIONAL UNIT, QOW
     Route: 042
     Dates: start: 202302
  2. IDELVION [Suspect]
     Active Substance: COAGULATION FACTOR IX RECOMBINANT HUMAN
     Indication: Factor IX deficiency
     Dosage: 1000 INTERNATIONAL UNIT, QOW
     Route: 042
     Dates: start: 202302
  3. IDELVION [Suspect]
     Active Substance: COAGULATION FACTOR IX RECOMBINANT HUMAN
     Indication: Traumatic haemorrhage
     Dosage: 1000 INTERNATIONAL UNIT, PRN
     Route: 042
     Dates: start: 202302
  4. IDELVION [Suspect]
     Active Substance: COAGULATION FACTOR IX RECOMBINANT HUMAN
     Indication: Traumatic haemorrhage
     Dosage: 1000 INTERNATIONAL UNIT, PRN
     Route: 042
     Dates: start: 202302
  5. IDELVION [Suspect]
     Active Substance: COAGULATION FACTOR IX RECOMBINANT HUMAN
     Indication: Traumatic haematoma
     Dosage: 500 INTERNATIONAL UNIT, QOW
     Route: 042
     Dates: start: 202302
  6. IDELVION [Suspect]
     Active Substance: COAGULATION FACTOR IX RECOMBINANT HUMAN
     Indication: Traumatic haematoma
     Dosage: 500 INTERNATIONAL UNIT, QOW
     Route: 042
     Dates: start: 202302
  7. IDELVION [Suspect]
     Active Substance: COAGULATION FACTOR IX RECOMBINANT HUMAN
     Dosage: 500 INTERNATIONAL UNIT, PRN
     Route: 042
     Dates: start: 202302
  8. IDELVION [Suspect]
     Active Substance: COAGULATION FACTOR IX RECOMBINANT HUMAN
     Dosage: 500 INTERNATIONAL UNIT, PRN
     Route: 042
     Dates: start: 202302
  9. IDELVION [Suspect]
     Active Substance: COAGULATION FACTOR IX RECOMBINANT HUMAN
     Dosage: 1 DOSAGE FORM, PRN
     Route: 042
     Dates: start: 20231026
  10. IDELVION [Suspect]
     Active Substance: COAGULATION FACTOR IX RECOMBINANT HUMAN
     Dosage: 1 DOSAGE FORM, PRN
     Route: 042
     Dates: start: 20231026
  11. IDELVION [Suspect]
     Active Substance: COAGULATION FACTOR IX RECOMBINANT HUMAN
     Dosage: 1500 INTERNATIONAL UNIT, QOW
     Route: 042
     Dates: start: 201907
  12. IDELVION [Suspect]
     Active Substance: COAGULATION FACTOR IX RECOMBINANT HUMAN
     Dosage: 1500 INTERNATIONAL UNIT, QOW
     Route: 042
     Dates: start: 201907
  13. IDELVION [Suspect]
     Active Substance: COAGULATION FACTOR IX RECOMBINANT HUMAN
     Dosage: 1 DOSAGE FORM, PRN
     Route: 042
     Dates: start: 20231128
  14. IDELVION [Suspect]
     Active Substance: COAGULATION FACTOR IX RECOMBINANT HUMAN
     Dosage: 1 DOSAGE FORM, PRN
     Route: 042
     Dates: start: 20231128

REACTIONS (5)
  - Haemorrhage [Recovered/Resolved]
  - Fall [Unknown]
  - Head injury [Unknown]
  - Traumatic haematoma [Unknown]
  - Fall [Unknown]

NARRATIVE: CASE EVENT DATE: 20231026
